FAERS Safety Report 8465974 (Version 8)
Quarter: 2014Q1

REPORT INFORMATION
  Report Type: Spontaneous
  Country: US (occurrence: US)
  Receive Date: 20120319
  Receipt Date: 20140320
  Transmission Date: 20141002
  Serious: Yes (Hospitalization, Other)
  Sender: FDA-Public Use
  Company Number: US-MERCK-1203USA02006

PATIENT
  Sex: Female
  Weight: 54.42 kg

DRUGS (7)
  1. FOSAMAX [Suspect]
     Indication: OSTEOPOROSIS
     Dosage: 70 MG, QM
     Route: 048
     Dates: start: 2002, end: 200804
  2. FOSAMAX [Suspect]
     Indication: OSTEOPENIA
  3. FOSAMAX [Suspect]
     Indication: OSTEOPOROSIS
     Dosage: 70 MG, UNK
     Route: 048
     Dates: start: 20080402, end: 2008
  4. ALENDRONATE SODIUM [Suspect]
     Indication: OSTEOPOROSIS
     Dosage: 70 MG, UNK
     Route: 048
     Dates: start: 20090107, end: 2010
  5. VERAPAMIL [Concomitant]
     Indication: HYPERTENSION
  6. CALCIUM (UNSPECIFIED) (+) VITAMIN D (UNSPECIFIED) [Concomitant]
     Indication: OSTEOPENIA
  7. VITAMINS (UNSPECIFIED) [Concomitant]
     Dosage: UNK, QD
     Dates: start: 1992

REACTIONS (15)
  - Femur fracture [Recovering/Resolving]
  - Femur fracture [Unknown]
  - Intramedullary rod insertion [Unknown]
  - Cholecystectomy [Unknown]
  - Haemorrhagic anaemia [Unknown]
  - Bone lesion [Unknown]
  - Transfusion [Unknown]
  - Fall [Unknown]
  - Low turnover osteopathy [Unknown]
  - Crohn^s disease [Unknown]
  - Inappropriate schedule of drug administration [Recovered/Resolved]
  - Osteoporosis [Unknown]
  - Hypothyroidism [Unknown]
  - Macular degeneration [Unknown]
  - Constipation [Unknown]
